FAERS Safety Report 15700951 (Version 1)
Quarter: 2018Q4

REPORT INFORMATION
  Report Type: Report from Study
  Country: US (occurrence: US)
  Receive Date: 20181207
  Receipt Date: 20181207
  Transmission Date: 20190205
  Serious: Yes (Other)
  Sender: FDA-Public Use
  Company Number: US-JNJFOC-20180907273

PATIENT
  Age: 69 Year
  Sex: Female

DRUGS (13)
  1. IMBRUVICA [Suspect]
     Active Substance: IBRUTINIB
     Indication: CHRONIC LYMPHOCYTIC LEUKAEMIA
     Route: 048
     Dates: start: 20180811
  2. IMBRUVICA [Suspect]
     Active Substance: IBRUTINIB
     Indication: CHRONIC LYMPHOCYTIC LEUKAEMIA
     Route: 048
     Dates: start: 20170515
  3. LEVEMIR [Concomitant]
     Active Substance: INSULIN DETEMIR
  4. ASPIRIN. [Concomitant]
     Active Substance: ASPIRIN
  5. TOUJEO [Concomitant]
     Active Substance: INSULIN GLARGINE
  6. LEVOTHYROXINE. [Concomitant]
     Active Substance: LEVOTHYROXINE
  7. LASIX [Concomitant]
     Active Substance: FUROSEMIDE
  8. VICTOZA [Concomitant]
     Active Substance: LIRAGLUTIDE
  9. NOVOLOG [Concomitant]
     Active Substance: INSULIN ASPART
  10. IMBRUVICA [Suspect]
     Active Substance: IBRUTINIB
     Indication: CHRONIC LYMPHOCYTIC LEUKAEMIA
     Route: 048
     Dates: start: 20170517
  11. VITAMIN D [Concomitant]
     Active Substance: CHOLECALCIFEROL
  12. EMLA [Concomitant]
     Active Substance: LIDOCAINE\PRILOCAINE
  13. KEPPRA [Concomitant]
     Active Substance: LEVETIRACETAM

REACTIONS (7)
  - Gastrointestinal vascular malformation [Unknown]
  - Haematochezia [Unknown]
  - Anal incontinence [Unknown]
  - Fatigue [Unknown]
  - Haemoglobin abnormal [Unknown]
  - Faeces hard [Recovering/Resolving]
  - Platelet count decreased [Recovering/Resolving]

NARRATIVE: CASE EVENT DATE: 201808
